FAERS Safety Report 7759751-3 (Version None)
Quarter: 2011Q3

REPORT INFORMATION
  Report Type: 
  Country: None (occurrence: None)
  Receive Date: 20110915
  Receipt Date: 20110902
  Transmission Date: 20111222
  Serious: Yes (Other)
  Sender: FDA-Public Use
  Company Number: GER/UKI/11/0018779

PATIENT
  Age: 51 Year
  Sex: Male

DRUGS (9)
  1. OMEPRAZOLE [Suspect]
     Indication: CEREBRAL THROMBOSIS
     Dosage: 40 MG, 2 IN 1 D, ORAL
     Route: 048
  2. NARATRIPTAN 2.5MG TABS (NARATRIPTAN) [Concomitant]
  3. FOLIC ACID [Concomitant]
  4. VALPROATE SODIUM [Concomitant]
  5. PYRIDOXINE 10 MG TABS (PYRIDOXINE) [Concomitant]
  6. LEVETIRACETAM 1000MG TABS (LEVETIRACETAM) [Concomitant]
  7. PHENYTOIN SODIUM [Concomitant]
  8. FERROUS SULPHATE 200MG TABS (FERROUS SULFATE) [Concomitant]
  9. VITAMIN B COMP STRONG (NEUROBION /00176001/) [Concomitant]

REACTIONS (2)
  - EPILEPSY [None]
  - INSOMNIA [None]
